FAERS Safety Report 16784676 (Version 1)
Quarter: 2019Q3

REPORT INFORMATION
  Report Type: Spontaneous
  Country: GB (occurrence: GB)
  Receive Date: 20190909
  Receipt Date: 20190909
  Transmission Date: 20191005
  Serious: Yes (Other)
  Sender: FDA-Public Use
  Company Number: GB-ROCHE-2405220

PATIENT
  Sex: Male
  Weight: 1.82 kg

DRUGS (4)
  1. PHENYTOIN. [Concomitant]
     Active Substance: PHENYTOIN
     Route: 042
  2. DIAZEPAM. [Suspect]
     Active Substance: DIAZEPAM
     Route: 064
  3. DIAZEPAM. [Suspect]
     Active Substance: DIAZEPAM
     Indication: PRODUCT USED FOR UNKNOWN INDICATION
     Route: 064
  4. THIOPENTONE [THIOPENTAL] [Concomitant]
     Active Substance: THIOPENTAL

REACTIONS (3)
  - Foetal exposure during pregnancy [Unknown]
  - Apnoea [Recovered/Resolved]
  - Hypotonia [Recovered/Resolved]
